FAERS Safety Report 4362108-9 (Version None)
Quarter: 2004Q2

REPORT INFORMATION
  Report Type: 
  Country: None (occurrence: None)
  Receive Date: 20040519
  Receipt Date: 20040519
  Transmission Date: 20050107
  Serious: No
  Sender: FDA-Public Use
  Company Number: None

PATIENT
  Age: 79 Year
  Sex: Female
  Weight: 87.2 kg

DRUGS (2)
  1. TARCEVA 051 774 (ERLOTINIB) [Suspect]
     Indication: NON-SMALL CELL LUNG CANCER
     Dosage: 150 MG QD PO
     Route: 048
     Dates: start: 20040402, end: 20040416
  2. TARCEVA 051 774 (ERLOTINIB) [Suspect]
     Indication: NON-SMALL CELL LUNG CANCER
     Dosage: 200 MG QD PO
     Route: 048
     Dates: start: 20040417, end: 20040428

REACTIONS (4)
  - CHRONIC OBSTRUCTIVE AIRWAYS DISEASE [None]
  - DRUG TOXICITY [None]
  - INTERSTITIAL LUNG DISEASE [None]
  - PNEUMONIA [None]
